FAERS Safety Report 10384233 (Version 1)
Quarter: 2014Q3

REPORT INFORMATION
  Report Type: Spontaneous
  Country: US (occurrence: US)
  Receive Date: 20140814
  Receipt Date: 20140814
  Transmission Date: 20150326
  Serious: No
  Sender: FDA-Public Use
  Company Number: US-PFIZER INC-2014224640

PATIENT
  Sex: Female

DRUGS (1)
  1. RAPAMUNE [Suspect]
     Active Substance: SIROLIMUS
     Dosage: 1 MG, SINCE FOUR TO FIVE MONTHS
     Dates: start: 2014

REACTIONS (7)
  - Cough [Not Recovered/Not Resolved]
  - Skin warm [Unknown]
  - Erythema [Unknown]
  - Oral herpes [Unknown]
  - Malaise [Not Recovered/Not Resolved]
  - Pruritus [Unknown]
  - Oedema peripheral [Unknown]

NARRATIVE: CASE EVENT DATE: 2014
